FAERS Safety Report 20790802 (Version 1)
Quarter: 2022Q2

REPORT INFORMATION
  Report Type: Spontaneous
  Country: US (occurrence: US)
  Receive Date: 20220505
  Receipt Date: 20220505
  Transmission Date: 20220721
  Serious: Yes (Other)
  Sender: FDA-Public Use
  Company Number: US-009507513-2205USA001010

PATIENT
  Age: 71 Year
  Sex: Male

DRUGS (7)
  1. CUBICIN [Suspect]
     Active Substance: DAPTOMYCIN
     Indication: Corynebacterium bacteraemia
  2. TAMSULOSIN [Concomitant]
     Active Substance: TAMSULOSIN
  3. LOSARTAN [Concomitant]
     Active Substance: LOSARTAN
  4. DULOXETINE [Concomitant]
     Active Substance: DULOXETINE
  5. ATORVASTATIN [Concomitant]
     Active Substance: ATORVASTATIN
  6. APIXABAN [Concomitant]
     Active Substance: APIXABAN
  7. CARVEDILOL [Concomitant]
     Active Substance: CARVEDILOL

REACTIONS (3)
  - Stevens-Johnson syndrome [Recovered/Resolved]
  - Toxic epidermal necrolysis [Recovered/Resolved]
  - Product use in unapproved indication [Unknown]
